FAERS Safety Report 16189200 (Version 1)
Quarter: 2019Q2

REPORT INFORMATION
  Report Type: Spontaneous
  Country: US (occurrence: US)
  Receive Date: 20190412
  Receipt Date: 20190412
  Transmission Date: 20190711
  Serious: Yes (Death)
  Sender: FDA-Public Use
  Company Number: US-PTC THERAPEUTICS, INC.-US-2019PTC000647

PATIENT

DRUGS (2)
  1. EMFLAZA [Suspect]
     Active Substance: DEFLAZACORT
     Indication: DUCHENNE MUSCULAR DYSTROPHY
     Dosage: 27 MG, QD
     Route: 048
     Dates: start: 20170622
  2. EMFLAZA [Suspect]
     Active Substance: DEFLAZACORT
     Dosage: 27 MG (ONE AND A HALF TABLET), UNK
     Route: 065
     Dates: start: 20171102

REACTIONS (1)
  - Death [Fatal]

NARRATIVE: CASE EVENT DATE: 20190327
